FAERS Safety Report 17966256 (Version 1)
Quarter: 2020Q3

REPORT INFORMATION
  Report Type: Spontaneous
  Country: NL (occurrence: NL)
  Receive Date: 20200701
  Receipt Date: 20200701
  Transmission Date: 20201103
  Serious: Yes (Disabling)
  Sender: FDA-Public Use
  Company Number: NL-009507513-1612NLD009665

PATIENT
  Sex: Female
  Weight: 103 kg

DRUGS (2)
  1. UBIDECARENONE [Concomitant]
     Active Substance: UBIDECARENONE
     Dosage: 1 TIME A DAY 1 UNIT(S), EXTRA INFO: 100MG
     Dates: start: 201512
  2. EZETROL [Suspect]
     Active Substance: EZETIMIBE
     Indication: TYPE IIA HYPERLIPIDAEMIA
     Dosage: 1 TIME A DAY 1 UNIT(S)
     Route: 048
     Dates: start: 2000, end: 201608

REACTIONS (5)
  - Arthralgia [Recovering/Resolving]
  - Myalgia [Recovering/Resolving]
  - Muscle rupture [Recovered/Resolved]
  - Meniscus injury [Recovered/Resolved]
  - Fatigue [Unknown]

NARRATIVE: CASE EVENT DATE: 2000
